FAERS Safety Report 23944286 (Version 6)
Quarter: 2024Q4

REPORT INFORMATION
  Report Type: Report from Study
  Country: CA (occurrence: CA)
  Receive Date: 20240606
  Receipt Date: 20241231
  Transmission Date: 20250114
  Serious: Yes (Hospitalization, Other)
  Sender: TAKEDA
  Company Number: CA-TAKEDA-2024TUS043378

PATIENT
  Age: 29 Year
  Sex: Female

DRUGS (6)
  1. VEDOLIZUMAB [Suspect]
     Active Substance: VEDOLIZUMAB
     Indication: Colitis ulcerative
     Dosage: 300 MILLIGRAM
  2. VEDOLIZUMAB [Suspect]
     Active Substance: VEDOLIZUMAB
     Dosage: 300 MILLIGRAM, Q4WEEKS
     Dates: start: 20201126
  3. VEDOLIZUMAB [Suspect]
     Active Substance: VEDOLIZUMAB
     Dosage: 300 MILLIGRAM, Q4WEEKS
  4. VEDOLIZUMAB [Suspect]
     Active Substance: VEDOLIZUMAB
     Dosage: 300 MILLIGRAM, Q4WEEKS
  5. SUBOXONE [Concomitant]
     Active Substance: BUPRENORPHINE HYDROCHLORIDE\NALOXONE HYDROCHLORIDE
     Dosage: 2 MILLIGRAM
  6. REMICADE [Concomitant]
     Active Substance: INFLIXIMAB
     Dosage: UNK

REACTIONS (14)
  - Clostridium difficile infection [Unknown]
  - Bacteraemia [Unknown]
  - Colitis ulcerative [Unknown]
  - Haematochezia [Unknown]
  - Syncope [Unknown]
  - Small intestinal obstruction [Unknown]
  - Product dose omission issue [Unknown]
  - Frequent bowel movements [Unknown]
  - Soft tissue infection [Unknown]
  - Abscess [Unknown]
  - Off label use [Unknown]
  - Blood iron decreased [Unknown]
  - COVID-19 [Unknown]
  - Dizziness [Unknown]

NARRATIVE: CASE EVENT DATE: 20201126
